FAERS Safety Report 7139080-1 (Version None)
Quarter: 2010Q4

REPORT INFORMATION
  Report Type: 
  Country: None (occurrence: None)
  Receive Date: 20101206
  Receipt Date: 20101129
  Transmission Date: 20110411
  Serious: Yes (Hospitalization)
  Sender: FDA-Public Use
  Company Number: B0672430A

PATIENT
  Sex: Female
  Weight: 64 kg

DRUGS (8)
  1. VALTREX [Suspect]
     Indication: HERPES ZOSTER
     Dosage: 2000MG PER DAY
     Route: 048
     Dates: start: 20100824, end: 20100826
  2. IRBESARTAN [Concomitant]
     Dosage: 100MG PER DAY
     Route: 048
     Dates: start: 20100501
  3. FUROSEMIDE [Concomitant]
     Dosage: 20MG PER DAY
     Route: 048
     Dates: start: 20100501
  4. LUPRAC [Concomitant]
     Dosage: 2MG PER DAY
     Route: 048
     Dates: start: 20100501
  5. THEO-DUR [Concomitant]
     Dosage: 200MG PER DAY
     Route: 048
     Dates: start: 20100501
  6. SIGMART [Concomitant]
     Dosage: 15MG PER DAY
     Route: 048
     Dates: start: 20100501
  7. MUCODYNE [Concomitant]
     Dosage: 1500MG PER DAY
     Route: 048
     Dates: start: 20100501
  8. BISOLVON [Concomitant]
     Dosage: 12MG PER DAY
     Route: 048
     Dates: start: 20100501

REACTIONS (4)
  - ALTERED STATE OF CONSCIOUSNESS [None]
  - CONVULSION [None]
  - MUSCLE SPASMS [None]
  - SCAB [None]
